FAERS Safety Report 22380165 (Version 7)
Quarter: 2023Q4

REPORT INFORMATION
  Report Type: Report from Study
  Country: US (occurrence: US)
  Receive Date: 20230529
  Receipt Date: 20231021
  Transmission Date: 20240110
  Serious: Yes (Hospitalization, Other)
  Sender: FDA-Public Use
  Company Number: US-TAKEDA-2023TUS045951

PATIENT
  Age: 36 Year
  Sex: Male

DRUGS (16)
  1. TEDUGLUTIDE [Suspect]
     Active Substance: TEDUGLUTIDE
     Indication: Short-bowel syndrome
     Dosage: 0.45 MILLILITER, QD
     Route: 058
     Dates: start: 202304
  2. TEDUGLUTIDE [Suspect]
     Active Substance: TEDUGLUTIDE
     Indication: Short-bowel syndrome
     Dosage: 0.45 MILLILITER, QD
     Route: 058
     Dates: start: 202304
  3. TEDUGLUTIDE [Suspect]
     Active Substance: TEDUGLUTIDE
     Indication: Short-bowel syndrome
     Dosage: 0.45 MILLILITER, QD
     Route: 058
     Dates: start: 202304
  4. TEDUGLUTIDE [Suspect]
     Active Substance: TEDUGLUTIDE
     Indication: Short-bowel syndrome
     Dosage: 0.45 MILLILITER, QD
     Route: 058
     Dates: start: 202304
  5. TEDUGLUTIDE [Suspect]
     Active Substance: TEDUGLUTIDE
     Dosage: 0.45 MILLILITER, QD
     Route: 058
     Dates: start: 20230411
  6. TEDUGLUTIDE [Suspect]
     Active Substance: TEDUGLUTIDE
     Dosage: 0.45 MILLILITER, QD
     Route: 058
     Dates: start: 20230411
  7. TEDUGLUTIDE [Suspect]
     Active Substance: TEDUGLUTIDE
     Dosage: 0.45 MILLILITER, QD
     Route: 058
     Dates: start: 20230411
  8. TEDUGLUTIDE [Suspect]
     Active Substance: TEDUGLUTIDE
     Dosage: 0.45 MILLILITER, QD
     Route: 058
     Dates: start: 20230411
  9. TEDUGLUTIDE [Suspect]
     Active Substance: TEDUGLUTIDE
     Dosage: 0.45 MILLILITER, QD
     Route: 058
     Dates: start: 20230414
  10. TEDUGLUTIDE [Suspect]
     Active Substance: TEDUGLUTIDE
     Dosage: 0.45 MILLILITER, QD
     Route: 058
     Dates: start: 20230414
  11. TEDUGLUTIDE [Suspect]
     Active Substance: TEDUGLUTIDE
     Dosage: 0.45 MILLILITER, QD
     Route: 058
     Dates: start: 20230414
  12. TEDUGLUTIDE [Suspect]
     Active Substance: TEDUGLUTIDE
     Dosage: 0.45 MILLILITER, QD
     Route: 058
     Dates: start: 20230414
  13. TEDUGLUTIDE [Suspect]
     Active Substance: TEDUGLUTIDE
     Dosage: 0.45 MILLILITER, QD
     Route: 058
     Dates: start: 20230420
  14. TEDUGLUTIDE [Suspect]
     Active Substance: TEDUGLUTIDE
     Dosage: 0.45 MILLILITER, QD
     Route: 058
     Dates: start: 20230420
  15. TEDUGLUTIDE [Suspect]
     Active Substance: TEDUGLUTIDE
     Dosage: 0.45 MILLILITER, QD
     Route: 058
     Dates: start: 20230420
  16. TEDUGLUTIDE [Suspect]
     Active Substance: TEDUGLUTIDE
     Dosage: 0.45 MILLILITER, QD
     Route: 058
     Dates: start: 20230420

REACTIONS (25)
  - Urinary retention [Unknown]
  - Device related sepsis [Recovering/Resolving]
  - Pain [Unknown]
  - Wound haemorrhage [Unknown]
  - Night sweats [Recovering/Resolving]
  - Chills [Unknown]
  - Constipation [Unknown]
  - Pain in extremity [Unknown]
  - Skin laceration [Unknown]
  - Pyrexia [Recovered/Resolved]
  - Gastrointestinal bacterial overgrowth [Unknown]
  - Muscle twitching [Unknown]
  - Weight increased [Unknown]
  - Peripheral swelling [Unknown]
  - Hyperhidrosis [Recovering/Resolving]
  - Hot flush [Recovering/Resolving]
  - Red blood cell count decreased [Unknown]
  - Haemoglobin decreased [Unknown]
  - Gastrointestinal pain [Unknown]
  - Nausea [Unknown]
  - Vomiting [Unknown]
  - Abdominal distension [Unknown]
  - Abdominal pain upper [Unknown]
  - Flatulence [Unknown]
  - Abdominal pain lower [Unknown]

NARRATIVE: CASE EVENT DATE: 20230510
